FAERS Safety Report 7183562-3 (Version None)
Quarter: 2010Q4

REPORT INFORMATION
  Report Type: 
  Country: None (occurrence: None)
  Receive Date: 20101222
  Receipt Date: 20101217
  Transmission Date: 20110411
  Serious: Yes (Other)
  Sender: FDA-Public Use
  Company Number: DE-SANOFI-AVENTIS-2010SA076285

PATIENT
  Age: 77 Year
  Sex: Male

DRUGS (2)
  1. CLEXANE [Suspect]
     Indication: THROMBOSIS PROPHYLAXIS
     Route: 058
  2. MARCUMAR [Concomitant]

REACTIONS (2)
  - HAEMORRHAGIC STROKE [None]
  - ISCHAEMIC STROKE [None]
